FAERS Safety Report 23995539 (Version 2)
Quarter: 2024Q2

REPORT INFORMATION
  Report Type: Spontaneous
  Country: SG (occurrence: SG)
  Receive Date: 20240620
  Receipt Date: 20240625
  Transmission Date: 20240716
  Serious: Yes (Hospitalization, Other)
  Sender: FDA-Public Use
  Company Number: SG-SA-2024SA182673

PATIENT
  Age: 62 Year
  Sex: Male

DRUGS (4)
  1. OXALIPLATIN [Suspect]
     Active Substance: OXALIPLATIN
     Indication: Adenocarcinoma metastatic
     Dosage: UNK UNK, QCY
  2. FLUOROURACIL [Suspect]
     Active Substance: FLUOROURACIL
     Indication: Adenocarcinoma metastatic
     Dosage: UNK UNK, QCY
  3. LEUCOVORIN [Suspect]
     Active Substance: LEUCOVORIN\LEUCOVORIN CALCIUM
     Indication: Adenocarcinoma metastatic
     Dosage: UNK UNK, QCY
  4. CETUXIMAB [Suspect]
     Active Substance: CETUXIMAB
     Indication: Adenocarcinoma metastatic
     Dosage: UNK UNK, QCY

REACTIONS (5)
  - Pneumonitis [Recovered/Resolved]
  - Rales [Recovered/Resolved]
  - Lung infiltration [Recovered/Resolved]
  - Organising pneumonia [Recovered/Resolved]
  - Dyspnoea [Recovered/Resolved]
